FAERS Safety Report 16113835 (Version 2)
Quarter: 2021Q2

REPORT INFORMATION
  Report Type: Spontaneous
  Country: US (occurrence: US)
  Receive Date: 20190325
  Receipt Date: 20210413
  Transmission Date: 20210716
  Serious: No
  Sender: FDA-Public Use
  Company Number: US-ALLERGAN-1838012US

PATIENT
  Sex: Male

DRUGS (2)
  1. LUMIGAN [Suspect]
     Active Substance: BIMATOPROST
     Indication: INTRAOCULAR PRESSURE INCREASED
     Dosage: UNK
     Route: 047
     Dates: start: 201806
  2. LUMIGAN [Suspect]
     Active Substance: BIMATOPROST
     Dosage: UNK

REACTIONS (1)
  - Iris disorder [Not Recovered/Not Resolved]

NARRATIVE: CASE EVENT DATE: 201806
